FAERS Safety Report 17066958 (Version 1)
Quarter: 2019Q4

REPORT INFORMATION
  Report Type: Report from Study
  Country: IT (occurrence: IT)
  Receive Date: 20191122
  Receipt Date: 20191122
  Transmission Date: 20200122
  Serious: Yes (Hospitalization)
  Sender: FDA-Public Use
  Company Number: IT-MYLANLABS-2019M1113161

PATIENT
  Age: 49 Year
  Sex: Female

DRUGS (1)
  1. BRUFEN [Suspect]
     Active Substance: IBUPROFEN
     Indication: ANTIINFLAMMATORY THERAPY
     Dosage: 1 DOSAGE FORM, PRN
     Route: 048
     Dates: start: 20190328, end: 20190329

REACTIONS (2)
  - Chest pain [Recovering/Resolving]
  - Tachycardia [Recovering/Resolving]

NARRATIVE: CASE EVENT DATE: 20190329
